FAERS Safety Report 4958567-0 (Version None)
Quarter: 2006Q1

REPORT INFORMATION
  Report Type: 
  Country: None (occurrence: None)
  Receive Date: 20060127
  Receipt Date: 20060127
  Transmission Date: 20060701
  Serious: Yes (Other)
  Sender: FDA-Public Use
  Company Number: 05-08-1432

PATIENT
  Age: 50 Year
  Sex: Male
  Weight: 91.173 kg

DRUGS (14)
  1. CLOZAPINE [Suspect]
     Indication: MENTAL DISORDER
     Dosage: 50 MG QAM, 200 MG QHS, ORAL
     Route: 048
     Dates: start: 20041118, end: 20050823
  2. CLOZAPINE [Suspect]
     Indication: SCHIZOAFFECTIVE DISORDER
     Dosage: 50 MG QAM, 200 MG QHS, ORAL
     Route: 048
     Dates: start: 20041118, end: 20050823
  3. OLANZAPINE [Concomitant]
  4. VALPROATE SODIUM [Concomitant]
  5. MONTELUKAST [Concomitant]
  6. CLOPIDOGREL BISULFATE [Concomitant]
  7. PIOGLITAZONE HCL [Concomitant]
  8. LISINOPRIL [Concomitant]
  9. RANITIDINE [Concomitant]
  10. METFORMIN [Concomitant]
  11. GABAPENTIN [Concomitant]
  12. MAGNESIUM HYDROXIDE TAB [Concomitant]
  13. PARACETAMOL [Concomitant]
  14. ACETYLSALICYLIC ACID SRT [Concomitant]

REACTIONS (2)
  - ANAEMIA [None]
  - GRANULOCYTOPENIA [None]
